FAERS Safety Report 9386638 (Version 1)
Quarter: 2013Q3

REPORT INFORMATION
  Report Type: Report from Study
  Country: FR (occurrence: FR)
  Receive Date: 20130708
  Receipt Date: 20130708
  Transmission Date: 20140515
  Serious: Yes (Hospitalization)
  Sender: FDA-Public Use
  Company Number: PHHO2012FR014433

PATIENT
  Age: 65 Year
  Sex: Female

DRUGS (3)
  1. NEORAL [Suspect]
     Indication: RENAL TRANSPLANT
     Dosage: 170 MG, QD
     Route: 002
     Dates: start: 20120213
  2. CELLCEPT [Suspect]
     Indication: TRANSPLANT REJECTION
     Dosage: 1.5 G, QD
     Route: 002
     Dates: start: 20120213
  3. CORTANCYL [Suspect]
     Indication: TRANSPLANT REJECTION
     Dosage: 5 MG, QD
     Route: 002
     Dates: start: 20120214

REACTIONS (6)
  - Renal lymphocele [Recovering/Resolving]
  - Pyelonephritis acute [Recovered/Resolved]
  - Renal failure [Recovered/Resolved]
  - Inflammation [Recovering/Resolving]
  - Infected lymphocele [Recovering/Resolving]
  - Bacterial sepsis [Recovered/Resolved]
